FAERS Safety Report 7049231-5 (Version None)
Quarter: 2010Q4

REPORT INFORMATION
  Report Type: 
  Country: None (occurrence: None)
  Receive Date: 20101018
  Receipt Date: 20101005
  Transmission Date: 20110411
  Serious: Yes (Hospitalization)
  Sender: FDA-Public Use
  Company Number: DE-ROCHE-618578

PATIENT
  Age: 79 Year
  Sex: Male
  Weight: 58 kg

DRUGS (11)
  1. TORASEMIDE [Suspect]
     Route: 048
     Dates: end: 20080620
  2. ALDACTONE [Suspect]
     Dosage: FORM OF ADMINISTRATION:FILM COATED TABLET
     Route: 048
     Dates: end: 20080620
  3. XIPAMIDE [Suspect]
     Route: 048
     Dates: end: 20080720
  4. RAMIPRIL [Suspect]
     Route: 048
     Dates: end: 20080620
  5. FALITHROM [Concomitant]
     Dosage: FILM COARTED TABLET
     Route: 048
  6. METOCLOPRAMIDE [Concomitant]
     Indication: GASTROINTESTINAL MOTILITY DISORDER
     Dosage: DOSE 20GTT
     Route: 048
     Dates: start: 20080618, end: 20080620
  7. PANTOPRAZOLE SODIUM [Concomitant]
     Route: 048
     Dates: start: 20080301, end: 20080620
  8. METAMIZOLE SODIUM [Concomitant]
     Route: 048
     Dates: end: 20080620
  9. ALLOPURINOL [Concomitant]
     Indication: HYPERURICAEMIA
     Route: 048
     Dates: start: 20000101, end: 20080620
  10. SIMVASTATIN [Concomitant]
     Route: 048
     Dates: start: 20030101
  11. RISPERIDONE [Concomitant]
     Indication: DEMENTIA
     Dosage: FILM COATED TABLET.
     Route: 048
     Dates: start: 20050101

REACTIONS (3)
  - HYPOKALAEMIA [None]
  - HYPONATRAEMIA [None]
  - SYNCOPE [None]
